FAERS Safety Report 5312224-X (Version None)
Quarter: 2007Q2

REPORT INFORMATION
  Report Type: 
  Country: None (occurrence: None)
  Receive Date: 20070430
  Receipt Date: 20061023
  Transmission Date: 20071010
  Serious: No
  Sender: FDA-Public Use
  Company Number: 2006UW18669

PATIENT
  Age: 68 Year
  Sex: Male
  Weight: 77.6 kg

DRUGS (8)
  1. NEXIUM [Suspect]
     Indication: GASTROOESOPHAGEAL REFLUX DISEASE
     Route: 048
     Dates: start: 20050524
  2. NEXIUM [Suspect]
     Indication: EROSIVE OESOPHAGITIS
     Route: 048
     Dates: start: 20050524
  3. ZOCOR [Concomitant]
  4. FOSINOPRIL GENERIC [Concomitant]
  5. LIBRIUM [Concomitant]
  6. ZANTAC [Concomitant]
  7. TYLENOL [Concomitant]
  8. FLOMAX [Concomitant]

REACTIONS (4)
  - ABDOMINAL PAIN UPPER [None]
  - CONSTIPATION [None]
  - ENERGY INCREASED [None]
  - WEIGHT DECREASED [None]
